FAERS Safety Report 9345545 (Version 1)
Quarter: 2013Q2

REPORT INFORMATION
  Report Type: Spontaneous
  Country: AT (occurrence: AT)
  Receive Date: 20130613
  Receipt Date: 20130613
  Transmission Date: 20140414
  Serious: Yes (Other)
  Sender: FDA-Public Use
  Company Number: AT-ROCHE-1233679

PATIENT
  Age: 56 Year
  Sex: Female

DRUGS (11)
  1. TRASTUZUMAB [Suspect]
     Indication: BREAST CANCER
     Route: 065
     Dates: start: 20120116, end: 20120927
  2. TRASTUZUMAB [Suspect]
     Route: 065
     Dates: start: 201002, end: 201008
  3. TRASTUZUMAB [Suspect]
     Route: 065
     Dates: start: 201008, end: 201101
  4. TRASTUZUMAB [Suspect]
     Route: 065
     Dates: start: 20110330, end: 20110511
  5. TRASTUZUMAB [Suspect]
     Route: 065
     Dates: start: 20111006, end: 20111208
  6. CAPECITABINE [Concomitant]
     Route: 065
     Dates: start: 20110330, end: 20110511
  7. PACLITAXEL [Concomitant]
     Route: 065
     Dates: start: 201002, end: 201010
  8. CARBOPLATIN [Concomitant]
     Route: 065
     Dates: start: 20111006, end: 20111208
  9. LAPATINIB [Concomitant]
     Route: 065
     Dates: start: 20111006, end: 20111208
  10. DOCETAXEL [Concomitant]
     Route: 065
     Dates: start: 20120116, end: 20120613
  11. BEVACIZUMAB [Concomitant]
     Route: 065
     Dates: start: 20120116, end: 20120927

REACTIONS (2)
  - Breast cancer metastatic [Unknown]
  - Lymphangiosis carcinomatosa [Unknown]
